FAERS Safety Report 5418705-2 (Version None)
Quarter: 2007Q3

REPORT INFORMATION
  Report Type: 
  Country: None (occurrence: None)
  Receive Date: 20070817
  Receipt Date: 20070806
  Transmission Date: 20080115
  Serious: Yes (Death)
  Sender: FDA-Public Use
  Company Number: CN-MERCK-0708CHN00013

PATIENT
  Age: 80 Year
  Sex: Male

DRUGS (4)
  1. CANCIDAS [Suspect]
     Indication: FUNGAL INFECTION
     Route: 041
     Dates: start: 20070618, end: 20070618
  2. CANCIDAS [Suspect]
     Route: 041
     Dates: start: 20070619, end: 20070704
  3. TIENAM [Concomitant]
     Indication: INFECTION
     Route: 065
  4. ALPROSTADIL [Concomitant]
     Indication: CEREBRAL INFARCTION
     Route: 065

REACTIONS (2)
  - HAEMOPTYSIS [None]
  - PNEUMONIA [None]
